FAERS Safety Report 19668248 (Version 1)
Quarter: 2021Q3

REPORT INFORMATION
  Report Type: Spontaneous
  Country: CN (occurrence: CN)
  Receive Date: 20210806
  Receipt Date: 20210806
  Transmission Date: 20211014
  Serious: Yes (Other)
  Sender: FDA-Public Use
  Company Number: CN-IGSA-BIG0015507

PATIENT
  Age: 52 Year
  Sex: Female
  Weight: 48.9 kg

DRUGS (2)
  1. ALBUTEIN [Suspect]
     Active Substance: ALBUMIN HUMAN
     Indication: CERVIX CARCINOMA
     Dosage: 50 MILLILITER, QD
     Route: 042
     Dates: start: 20210701, end: 20210702
  2. ALBUTEIN [Suspect]
     Active Substance: ALBUMIN HUMAN
     Dosage: 50 MILLILITER, QD
     Route: 042
     Dates: start: 20210704, end: 20210704

REACTIONS (1)
  - Hepatic function abnormal [Unknown]

NARRATIVE: CASE EVENT DATE: 20210705
